FAERS Safety Report 9898364 (Version 2)
Quarter: 2014Q2

REPORT INFORMATION
  Report Type: Spontaneous
  Country: GB (occurrence: GB)
  Receive Date: 20140214
  Receipt Date: 20140624
  Transmission Date: 20141212
  Serious: Yes (Other)
  Sender: FDA-Public Use
  Company Number: GB-009507513-1402GBR006997

PATIENT
  Sex: Female

DRUGS (6)
  1. SINGULAIR [Suspect]
     Indication: CHRONIC SPONTANEOUS URTICARIA
     Dosage: 10 MG, NOCTURNAL, 2 WEEKS TRIAL
     Route: 048
     Dates: start: 201309, end: 2013
  2. CETIRIZINE HYDROCHLORIDE [Suspect]
     Indication: CHRONIC SPONTANEOUS URTICARIA
     Dosage: 10 MG, QD
  3. CYCLOSPORINE [Suspect]
     Indication: CHRONIC SPONTANEOUS URTICARIA
     Dosage: UNK, A MONTH TRIAL
     Dates: start: 201310, end: 2013
  4. FEXOFENADINE HYDROCHLORIDE [Suspect]
     Indication: CHRONIC SPONTANEOUS URTICARIA
     Dosage: 360 MG, DAILY
  5. HYDROXYZINE [Suspect]
     Indication: CHRONIC SPONTANEOUS URTICARIA
     Dosage: 50 MG, NOCTURNAL
  6. RANITIDINE [Suspect]
     Indication: CHRONIC SPONTANEOUS URTICARIA
     Dosage: 150 MG 2/1 DAYS

REACTIONS (6)
  - Chronic spontaneous urticaria [Recovering/Resolving]
  - Condition aggravated [Recovering/Resolving]
  - Insomnia [Unknown]
  - Angioedema [Unknown]
  - Pruritus [Unknown]
  - Drug ineffective [Unknown]
